FAERS Safety Report 9581322 (Version 3)
Quarter: 2013Q4

REPORT INFORMATION
  Report Type: Spontaneous
  Country: US (occurrence: US)
  Receive Date: 20131002
  Receipt Date: 20131022
  Transmission Date: 20140711
  Serious: Yes (Death, Life-Threatening, Hospitalization, Disabling)
  Sender: FDA-Public Use
  Company Number: US-GLAXOSMITHKLINE-A1043089A

PATIENT
  Age: 96 Year
  Sex: Female

DRUGS (4)
  1. PROMACTA [Suspect]
     Indication: IMMUNE THROMBOCYTOPENIC PURPURA
     Dosage: 50MG PER DAY
     Route: 065
     Dates: start: 201204
  2. KEFLEX [Concomitant]
  3. NORCO [Concomitant]
  4. PROTONIX [Concomitant]

REACTIONS (2)
  - Death [Fatal]
  - Disease progression [Fatal]
